FAERS Safety Report 15341240 (Version 2)
Quarter: 2019Q1

REPORT INFORMATION
  Report Type: Spontaneous
  Country: GB (occurrence: GB)
  Receive Date: 20180831
  Receipt Date: 20190205
  Transmission Date: 20190417
  Serious: Yes (Hospitalization)
  Sender: FDA-Public Use
  Company Number: PHHY2018GB083973

PATIENT
  Age: 3 Year
  Sex: Female

DRUGS (3)
  1. VALPROATE [Concomitant]
     Active Substance: VALPROIC ACID
     Indication: PRODUCT USED FOR UNKNOWN INDICATION
     Route: 065
  2. VIGABATRIN. [Concomitant]
     Active Substance: VIGABATRIN
     Indication: PRODUCT USED FOR UNKNOWN INDICATION
     Route: 065
  3. VOTUBIA [Suspect]
     Active Substance: EVEROLIMUS
     Indication: SEIZURE
     Dosage: 3 MG, QD
     Route: 065

REACTIONS (3)
  - Pneumonia [Unknown]
  - Oral pain [Unknown]
  - Infection [Unknown]
